FAERS Safety Report 24886455 (Version 1)
Quarter: 2025Q1

REPORT INFORMATION
  Report Type: Spontaneous
  Country: AU (occurrence: AU)
  Receive Date: 20250126
  Receipt Date: 20250126
  Transmission Date: 20250408
  Serious: Yes (Hospitalization, Other)
  Sender: CIPLA
  Company Number: AU-CIPLA LTD.-2025AU00909

PATIENT

DRUGS (1)
  1. ESCITALOPRAM [Suspect]
     Active Substance: ESCITALOPRAM OXALATE
     Indication: Generalised anxiety disorder
     Route: 065
     Dates: start: 20240810

REACTIONS (6)
  - Poor quality sleep [Unknown]
  - Depressed mood [Unknown]
  - Agitation [Unknown]
  - Anxiety [Unknown]
  - Suicidal ideation [Unknown]
  - Suicide attempt [Unknown]

NARRATIVE: CASE EVENT DATE: 20240810
